FAERS Safety Report 8266987-4 (Version None)
Quarter: 2012Q2

REPORT INFORMATION
  Report Type: 
  Country: None (occurrence: None)
  Receive Date: 20120409
  Receipt Date: 20120405
  Transmission Date: 20120825
  Serious: No
  Sender: FDA-Public Use
  Company Number: US-PFIZER INC-2012086390

PATIENT
  Sex: Female

DRUGS (7)
  1. KLONOPIN [Interacting]
     Dosage: UNK
  2. BONIVA [Interacting]
     Dosage: UNK
  3. KEPPRA [Interacting]
     Dosage: UNK
  4. TENORMIN [Interacting]
     Dosage: UNK
  5. NEXIUM [Interacting]
     Dosage: UNK
  6. CHANTIX [Suspect]
     Dosage: UNK
  7. FLONASE [Interacting]
     Dosage: UNK

REACTIONS (1)
  - DRUG INTERACTION [None]
